FAERS Safety Report 22170973 (Version 2)
Quarter: 2023Q2

REPORT INFORMATION
  Report Type: Other
  Country: US (occurrence: None)
  Receive Date: 20230404
  Receipt Date: 20230406
  Transmission Date: 20230721
  Serious: No
  Sender: FDA-Public Use
  Company Number: US-ROCHE-3324292

PATIENT
  Age: 74 Year
  Sex: Male

DRUGS (2)
  1. OCREVUS [Suspect]
     Active Substance: OCRELIZUMAB
     Indication: Multiple sclerosis
     Dosage: INFUNDA 600 MILI GRAMOS INTRAVENOSAMENTE CADA 6 MESE(S)?VIAL
     Route: 042
  2. OCREVUS [Suspect]
     Active Substance: OCRELIZUMAB
     Dosage: INFUNDA 600 MILI GRAMOS INTRAVENOSAMENTE CADA 6 MESE(S)?VIAL
     Route: 042

REACTIONS (1)
  - COVID-19 [Unknown]
